FAERS Safety Report 6182564-3 (Version None)
Quarter: 2009Q2

REPORT INFORMATION
  Report Type: 
  Country: None (occurrence: None)
  Receive Date: 20090507
  Receipt Date: 20090423
  Transmission Date: 20091009
  Serious: Yes (Hospitalization)
  Sender: FDA-Public Use
  Company Number: FR-PFIZER INC-2009208686

PATIENT

DRUGS (3)
  1. ATARAX [Suspect]
     Dosage: 100 MG, UNK
     Route: 048
     Dates: start: 20081210, end: 20090120
  2. FLAGYL [Suspect]
     Indication: ANTIBIOTIC THERAPY
     Dosage: 500 MG, 3X/DAY
     Route: 048
     Dates: start: 20081217, end: 20090120
  3. CIPROFLOXACIN HYDROCHLORIDE [Suspect]
     Indication: ANTIBIOTIC THERAPY
     Dosage: 500 MG, 2X/DAY
     Route: 048
     Dates: start: 20081217, end: 20090120

REACTIONS (1)
  - GRAND MAL CONVULSION [None]
